FAERS Safety Report 8936654 (Version 1)
Quarter: 2012Q4

REPORT INFORMATION
  Report Type: 
  Country: CH (occurrence: CH)
  Receive Date: 20121130
  Receipt Date: 20121130
  Transmission Date: 20130627
  Serious: Yes (Death, Other)
  Sender: FDA-Public Use
  Company Number: CH-ASTRAZENECA-2012SE89935

PATIENT
  Age: 84 Year
  Sex: Male
  Weight: 76 kg

DRUGS (10)
  1. SEROQUEL [Suspect]
     Route: 048
     Dates: start: 20120514, end: 20120523
  2. DAFALGAN [Suspect]
     Route: 048
     Dates: start: 20120504, end: 20120516
  3. BUPRENORPHINE [Suspect]
     Dates: start: 20120502, end: 20120523
  4. AMOXICILLIN\CLAVULANIC ACID [Suspect]
     Dates: start: 20120507, end: 20120517
  5. CLEXANE [Concomitant]
     Route: 058
     Dates: start: 20120510, end: 20120522
  6. SINTROM MITIS [Concomitant]
     Route: 048
  7. LAXOBERON [Concomitant]
     Route: 048
  8. KEPPRA [Concomitant]
     Route: 048
  9. HALDOL [Concomitant]
     Route: 058
     Dates: start: 20120423
  10. DISTRANEURINE [Concomitant]
     Dates: start: 20120608

REACTIONS (5)
  - Death [Fatal]
  - Hepatic enzyme increased [Recovered/Resolved]
  - Alanine aminotransferase increased [None]
  - Blood alkaline phosphatase increased [None]
  - Gamma-glutamyltransferase increased [None]
